FAERS Safety Report 16822365 (Version 1)
Quarter: 2019Q4

REPORT INFORMATION
  Report Type: Spontaneous
  Country: US (occurrence: US)
  Receive Date: 20190918
  Receipt Date: 20190918
  Transmission Date: 20200122
  Serious: No
  Sender: FDA-Public Use
  Company Number: None

PATIENT
  Age: 60 Year
  Sex: Male
  Weight: 96.75 kg

DRUGS (10)
  1. ATENOLOL. [Concomitant]
     Active Substance: ATENOLOL
  2. FINASTERIDE 5MG TAB [Suspect]
     Active Substance: FINASTERIDE
     Indication: BENIGN PROSTATIC HYPERPLASIA
     Dosage: ?          QUANTITY:1 TABLET(S);?
     Route: 048
  3. VITAMIN D [Concomitant]
     Active Substance: VITAMIN D NOS
  4. LOSARTAN. [Concomitant]
     Active Substance: LOSARTAN
  5. TESTOSTERONE CYPIONATE. [Concomitant]
     Active Substance: TESTOSTERONE CYPIONATE
  6. L-METHYLFOLATE [Concomitant]
     Active Substance: LEVOMEFOLIC ACID
  7. L-LEVOTHYROXINE [Concomitant]
  8. PRYSTIQ [Concomitant]
  9. PROTEIN POWDER [Concomitant]
  10. LIVALO [Concomitant]
     Active Substance: PITAVASTATIN CALCIUM

REACTIONS (4)
  - Fatigue [None]
  - Suicidal ideation [None]
  - Depression [None]
  - Amnesia [None]
